FAERS Safety Report 25441054 (Version 1)
Quarter: 2025Q2

REPORT INFORMATION
  Report Type: Spontaneous
  Country: US (occurrence: US)
  Receive Date: 20250616
  Receipt Date: 20250616
  Transmission Date: 20250716
  Serious: No
  Sender: MYLAN
  Company Number: US-MYLANLABS-2025M1047585

PATIENT
  Sex: Female
  Weight: 68.04 kg

DRUGS (12)
  1. SUCRALFATE [Suspect]
     Active Substance: SUCRALFATE
     Indication: Prophylaxis
     Dosage: 1 GRAM, QID (10ML BY MOUTH 4X DAILY BEFORE MEAL)
     Dates: start: 20250501
  2. GABAPENTIN [Concomitant]
     Active Substance: GABAPENTIN
  3. ATORVASTATIN [Concomitant]
     Active Substance: ATORVASTATIN
  4. VESICARE [Concomitant]
     Active Substance: SOLIFENACIN SUCCINATE
     Dosage: 5 MILLIGRAM, PM (AT NIGHT.)
  5. CLONAZEPAM [Concomitant]
     Active Substance: CLONAZEPAM
  6. OMEPRAZOLE [Concomitant]
     Active Substance: OMEPRAZOLE
  7. ATENOLOL [Concomitant]
     Active Substance: ATENOLOL
  8. HYDROCHLOROTHIAZIDE [Concomitant]
     Active Substance: HYDROCHLOROTHIAZIDE
  9. ASPIRIN [Concomitant]
     Active Substance: ASPIRIN
  10. TYLENOL [Concomitant]
     Active Substance: ACETAMINOPHEN
  11. COENZYME Q10 [Concomitant]
     Active Substance: DIETARY SUPPLEMENT\UBIDECARENONE
  12. LOSARTAN [Concomitant]
     Active Substance: LOSARTAN

REACTIONS (2)
  - Pruritus [Recovered/Resolved]
  - Rash erythematous [Recovered/Resolved]
